FAERS Safety Report 21369383 (Version 1)
Quarter: 2022Q3

REPORT INFORMATION
  Report Type: Spontaneous
  Country: US (occurrence: US)
  Receive Date: 20220923
  Receipt Date: 20220923
  Transmission Date: 20221026
  Serious: Yes (Death, Hospitalization, Other)
  Sender: FDA-Public Use
  Company Number: US-AMGEN-USASP2022160758

PATIENT

DRUGS (2)
  1. BEVACIZUMAB [Suspect]
     Active Substance: BEVACIZUMAB
     Indication: Rectal adenocarcinoma
     Route: 065
  2. FLUOROURACIL\LEUCOVORIN CALCIUM\OXALIPLATIN [Concomitant]
     Active Substance: FLUOROURACIL\LEUCOVORIN CALCIUM\OXALIPLATIN

REACTIONS (24)
  - Death [Fatal]
  - Rectal cancer recurrent [Unknown]
  - Gastrointestinal anastomotic leak [Unknown]
  - Postoperative wound infection [Unknown]
  - Pyelonephritis [Unknown]
  - Rectal cancer metastatic [Unknown]
  - Urostomy complication [Unknown]
  - Wound dehiscence [Unknown]
  - Small intestinal obstruction [Unknown]
  - Neuropathy peripheral [Unknown]
  - Abscess [Unknown]
  - Dermatitis [Unknown]
  - Dysuria [Unknown]
  - Cystitis radiation [Unknown]
  - Neuralgia [Unknown]
  - Temperature intolerance [Unknown]
  - Rectal tenesmus [Unknown]
  - Lower urinary tract symptoms [Unknown]
  - Pain in extremity [Unknown]
  - Nausea [Unknown]
  - Fatigue [Unknown]
  - Constipation [Unknown]
  - Diarrhoea [Unknown]
  - Proctalgia [Unknown]
